FAERS Safety Report 20940439 (Version 1)
Quarter: 2022Q2

REPORT INFORMATION
  Report Type: Spontaneous
  Country: US (occurrence: US)
  Receive Date: 20220609
  Receipt Date: 20220609
  Transmission Date: 20220721
  Serious: No
  Sender: FDA-Public Use
  Company Number: US-PFIZER INC-2020437525

PATIENT
  Age: 72 Year
  Sex: Female

DRUGS (1)
  1. PREMARIN [Suspect]
     Active Substance: ESTROGENS, CONJUGATED
     Dosage: 0.5 G (1/4 APPLICATOR FULL), WEEKLY (AT BEDTIME)
     Route: 067

REACTIONS (3)
  - COVID-19 [Unknown]
  - Illness [Unknown]
  - Off label use [Unknown]
